FAERS Safety Report 8815603 (Version 1)
Quarter: 2012Q4

REPORT INFORMATION
  Report Type: 
  Country: CH (occurrence: CH)
  Receive Date: 20120928
  Receipt Date: 20120928
  Transmission Date: 20130627
  Serious: Yes (Hospitalization)
  Sender: FDA-Public Use
  Company Number: CH-ASTRAZENECA-2012SE72941

PATIENT
  Age: 61 Year
  Sex: Male

DRUGS (19)
  1. ATACAND PLUS [Suspect]
     Dosage: 16/12.5 MG, 0.5 PER DAY
     Route: 048
  2. ASPIRIN CARDIO [Suspect]
     Route: 048
  3. IBUPROFEN [Suspect]
     Route: 048
     Dates: end: 20120706
  4. REMERON [Suspect]
     Route: 048
  5. LITHIUM SULFATE [Suspect]
     Route: 048
     Dates: end: 20120706
  6. LITHIUM SULFATE [Suspect]
     Route: 048
  7. LYRICA [Suspect]
     Route: 048
  8. OXYCONTIN [Suspect]
     Route: 048
  9. TEMESTA [Suspect]
     Route: 048
  10. CYMBALTA [Suspect]
     Route: 048
  11. UNSPECIFIED INGREDIENT [Concomitant]
     Route: 048
  12. CEFUROXIME [Concomitant]
     Route: 048
  13. DAFALGAN [Concomitant]
     Route: 048
  14. DULCOLAX [Concomitant]
     Route: 048
  15. ELTROXIN [Concomitant]
     Route: 048
  16. UNSPECIFIED INGREDIENT [Concomitant]
     Route: 048
  17. MAGNESIOCARD [Concomitant]
     Route: 048
  18. PANTOZOL [Concomitant]
     Route: 048
  19. UNSPECIFIED INGREDIENT [Concomitant]
     Route: 048

REACTIONS (5)
  - Drug level increased [Recovered/Resolved]
  - Ataxia [Recovered/Resolved]
  - Somnolence [Recovered/Resolved]
  - Muscular weakness [Recovered/Resolved]
  - Renal impairment [Recovered/Resolved]
